FAERS Safety Report 4661516-6 (Version None)
Quarter: 2005Q2

REPORT INFORMATION
  Report Type: 
  Country: None (occurrence: None)
  Receive Date: 20050511
  Receipt Date: 20050511
  Transmission Date: 20051028
  Serious: Yes (Hospitalization)
  Sender: FDA-Public Use
  Company Number: None

PATIENT
  Age: 56 Year
  Weight: 72.5755 kg

DRUGS (8)
  1. WARFARIN [Suspect]
     Indication: ATRIAL FIBRILLATION
     Dosage: 2.5MG   QHS  ORAL
     Route: 048
     Dates: start: 20050202, end: 20050225
  2. ASPIRIN [Suspect]
     Indication: CEREBROVASCULAR ACCIDENT PROPHYLAXIS
     Dosage: 325MG   QD   ORAL
     Route: 048
  3. WELLBUTRIN [Concomitant]
  4. PROPRANOLOL [Concomitant]
  5. AMBIEN [Concomitant]
  6. UNKNOWN DIURETIC [Concomitant]
  7. ASPIRIN [Concomitant]
  8. ZANTAC [Concomitant]

REACTIONS (6)
  - DUODENAL ULCER [None]
  - DUODENITIS [None]
  - GASTRITIS EROSIVE [None]
  - HAEMATEMESIS [None]
  - HAEMATOCRIT DECREASED [None]
  - MELAENA [None]
